FAERS Safety Report 8584709 (Version 3)
Quarter: 2013Q1

REPORT INFORMATION
  Report Type: Spontaneous
  Country: US (occurrence: US)
  Receive Date: 20120529
  Receipt Date: 20130307
  Transmission Date: 20140127
  Serious: No
  Sender: FDA-Public Use
  Company Number: US-ASTRAZENECA-2010SE06017

PATIENT
  Age: 72 Year
  Sex: Female
  Weight: 91.6 kg

DRUGS (15)
  1. ARIMIDEX [Suspect]
     Indication: BREAST CANCER FEMALE
     Route: 048
     Dates: start: 2005, end: 201001
  2. ARIMIDEX [Suspect]
     Indication: BREAST CANCER FEMALE
     Route: 048
     Dates: start: 2005, end: 20120425
  3. NEXIUM [Suspect]
     Route: 048
  4. OS-CAL D [Suspect]
     Dosage: 500
     Route: 065
  5. CANCER MEDICATION [Suspect]
     Indication: NEOPLASM MALIGNANT
     Route: 065
  6. THYROID MEDICATION [Suspect]
     Indication: THYROID DISORDER
     Route: 065
  7. LORAZEPAM [Concomitant]
  8. FISH OIL [Concomitant]
  9. PAXIL [Concomitant]
  10. POTASSIUM [Concomitant]
  11. VITAMIN B [Concomitant]
  12. SYNTHROID [Concomitant]
  13. HCTZ [Concomitant]
  14. MIACALCIN [Concomitant]
  15. PROLIA [Concomitant]

REACTIONS (23)
  - Gastrooesophageal reflux disease [Unknown]
  - Dyspepsia [Unknown]
  - Chills [Unknown]
  - Depression [Unknown]
  - Cough [Unknown]
  - Libido decreased [Unknown]
  - Eye pain [Unknown]
  - Throat irritation [Unknown]
  - Nasopharyngitis [Unknown]
  - Insomnia [Unknown]
  - Pyrexia [Unknown]
  - Local swelling [Unknown]
  - Nasal congestion [Unknown]
  - Rhinorrhoea [Unknown]
  - Neuropathy peripheral [Unknown]
  - Arthritis [Unknown]
  - Lethargy [Recovering/Resolving]
  - Fatigue [Unknown]
  - Osteoporosis [Unknown]
  - Myalgia [Unknown]
  - Osteopenia [Unknown]
  - Arthralgia [Unknown]
  - Headache [Unknown]
